FAERS Safety Report 9889232 (Version 1)
Quarter: 2014Q1

REPORT INFORMATION
  Report Type: Spontaneous
  Country: GB (occurrence: GB)
  Receive Date: 20140211
  Receipt Date: 20140211
  Transmission Date: 20141002
  Serious: Yes (Other)
  Sender: FDA-Public Use
  Company Number: PHHY2014GB012996

PATIENT
  Sex: Female
  Weight: 1.12 kg

DRUGS (4)
  1. CICLOSPORIN [Suspect]
     Route: 064
  2. PREDNISOLONE [Suspect]
     Route: 064
  3. METHYLDOPA [Suspect]
     Route: 064
  4. ISOPHANE INSULIN [Suspect]
     Route: 064

REACTIONS (4)
  - Low birth weight baby [Unknown]
  - Premature baby [Unknown]
  - Foetal exposure during pregnancy [Unknown]
  - Drug ineffective [Unknown]
